FAERS Safety Report 24052324 (Version 1)
Quarter: 2024Q3

REPORT INFORMATION
  Report Type: Spontaneous
  Country: IT (occurrence: IT)
  Receive Date: 20240704
  Receipt Date: 20240704
  Transmission Date: 20241017
  Serious: No
  Sender: MERCK
  Company Number: IT-009507513-2406ITA010186

PATIENT
  Age: 71 Year
  Sex: Female

DRUGS (3)
  1. MOLNUPIRAVIR [Suspect]
     Active Substance: MOLNUPIRAVIR
     Indication: COVID-19
     Dosage: 38 DAYS
     Route: 048
  2. NIRMATRELVIR [Concomitant]
     Active Substance: NIRMATRELVIR
     Indication: COVID-19
  3. RITONAVIR [Concomitant]
     Active Substance: RITONAVIR
     Indication: COVID-19

REACTIONS (2)
  - Treatment failure [Unknown]
  - Product use issue [Unknown]
